FAERS Safety Report 9416255 (Version 2)
Quarter: 2013Q3

REPORT INFORMATION
  Report Type: Spontaneous
  Country: JP (occurrence: None)
  Receive Date: 20130718
  Receipt Date: 20130815
  Transmission Date: 20140515
  Serious: Yes (Other)
  Sender: FDA-Public Use
  Company Number: SYM-2013-06084

PATIENT
  Age: 41 Year
  Sex: Female

DRUGS (6)
  1. FLUOROURACIL [Suspect]
     Indication: BREAST CANCER
  2. EPIRUBICIN [Suspect]
     Indication: BREAST CANCER
  3. ENDOXAN [Suspect]
     Indication: BREAST CANCER
     Dates: start: 20121214, end: 20121214
  4. ONETAXOTERE [Suspect]
     Indication: BREAST CANCER
     Route: 042
     Dates: start: 20121214, end: 20121214
  5. CHLOR-TRIMETON (CHLORPHENAMINE MALEATE) (CHLORPHENAMINE MALEATE) [Concomitant]
  6. DECADRON (DEXAMETHASONE) (DEXAMETHASONE) [Concomitant]

REACTIONS (5)
  - Basedow^s disease [None]
  - Palpitations [None]
  - Sinus tachycardia [None]
  - Hyperthyroidism [None]
  - Neuropathy peripheral [None]
